FAERS Safety Report 4609767-0 (Version None)
Quarter: 2005Q1

REPORT INFORMATION
  Report Type: 
  Country: None (occurrence: None)
  Receive Date: 20050314
  Receipt Date: 20050304
  Transmission Date: 20050727
  Serious: Yes (Death, Hospitalization)
  Sender: FDA-Public Use
  Company Number: FRWYE476704MAR05

PATIENT
  Age: 49 Year
  Sex: Male

DRUGS (7)
  1. TAZOCILLINE (PIPERACILLINE/ TAZOBACTAM, INJECTION) [Suspect]
     Route: 042
     Dates: start: 20050131
  2. AMIKLIN (AMIKACIN) [Suspect]
     Dates: start: 20050131
  3. TIENAM (CILASTATIN/IMIPENEM) [Suspect]
     Dates: start: 20050131
  4. FLUCONAZOLE [Suspect]
     Dates: start: 20050131
  5. VANCOMYCIN [Suspect]
     Dates: start: 20050131
  6. NEORAL [Concomitant]
  7. CORTICOSTEROID NOS (CORTICOSTEROID NOS) [Concomitant]

REACTIONS (3)
  - CARDIAC ARREST [None]
  - CONDITION AGGRAVATED [None]
  - SEPTIC SHOCK [None]
